FAERS Safety Report 4881689-X (Version None)
Quarter: 2005Q4

REPORT INFORMATION
  Report Type: 
  Country: None (occurrence: None)
  Receive Date: 20051201
  Receipt Date: 20050923
  Transmission Date: 20060501
  Serious: Yes (Hospitalization)
  Sender: FDA-Public Use
  Company Number: 247170

PATIENT
  Age: 41 Year
  Sex: Male
  Weight: 145.1 kg

DRUGS (1)
  1. NOVOLOG MIX 70/30 [Suspect]
     Indication: INSULIN-REQUIRING TYPE II DIABETES MELLITUS
     Dosage: SLIDING SCALE, SUBCUTANEOUS
     Route: 058
     Dates: start: 20050301, end: 20050301

REACTIONS (2)
  - BLOOD GLUCOSE INCREASED [None]
  - URINE KETONE BODY PRESENT [None]
